FAERS Safety Report 6903814-9 (Version None)
Quarter: 2010Q3

REPORT INFORMATION
  Report Type: 
  Country: None (occurrence: None)
  Receive Date: 20100804
  Receipt Date: 20081208
  Transmission Date: 20110219
  Serious: Yes (Other)
  Sender: FDA-Public Use
  Company Number: US-PFIZER INC-2008151195

PATIENT
  Sex: Female

DRUGS (1)
  1. LYRICA [Suspect]
     Indication: FIBROMYALGIA
     Dosage: UNK

REACTIONS (9)
  - BACK PAIN [None]
  - DYSPHAGIA [None]
  - DYSURIA [None]
  - FACE OEDEMA [None]
  - GASTROINTESTINAL MOTILITY DISORDER [None]
  - HYPERSENSITIVITY [None]
  - LOCAL SWELLING [None]
  - SUICIDE ATTEMPT [None]
  - WEIGHT INCREASED [None]
